FAERS Safety Report 7103936-6 (Version None)
Quarter: 2010Q4

REPORT INFORMATION
  Report Type: 
  Country: None (occurrence: None)
  Receive Date: 20101115
  Receipt Date: 20100504
  Transmission Date: 20110411
  Serious: No
  Sender: FDA-Public Use
  Company Number: US-ALLERGAN-1005826US

PATIENT
  Sex: Female

DRUGS (3)
  1. BOTOXA? [Suspect]
     Indication: TORTICOLLIS
     Dosage: 100 UNITS, SINGLE
     Route: 030
     Dates: start: 20100301, end: 20100301
  2. HAIR DYE [Concomitant]
  3. MULTI VITAMIN AND MINERAL + SELENIUM [Concomitant]

REACTIONS (1)
  - VISION BLURRED [None]
